FAERS Safety Report 14668121 (Version 1)
Quarter: 2018Q1

REPORT INFORMATION
  Report Type: Spontaneous
  Country: US (occurrence: US)
  Receive Date: 20180320
  Receipt Date: 20180320
  Transmission Date: 20180509
  Serious: No
  Sender: FDA-Public Use
  Company Number: None

PATIENT
  Age: 64 Year
  Sex: Male

DRUGS (1)
  1. HUMIRA [Suspect]
     Active Substance: ADALIMUMAB
     Indication: PSORIASIS
     Route: 058
     Dates: start: 20171222

REACTIONS (5)
  - Rash pustular [None]
  - Furuncle [None]
  - Fungal skin infection [None]
  - Drug ineffective [None]
  - Cellulitis [None]

NARRATIVE: CASE EVENT DATE: 20170201
